FAERS Safety Report 4555731-X (Version None)
Quarter: 2005Q1

REPORT INFORMATION
  Report Type: 
  Country: None (occurrence: None)
  Receive Date: 20050112
  Receipt Date: 20040420
  Transmission Date: 20050727
  Serious: Yes (Other)
  Sender: FDA-Public Use
  Company Number: 200417661BWH

PATIENT
  Age: 55 Year
  Sex: Male

DRUGS (7)
  1. CIPRO [Suspect]
     Indication: PHARYNGOLARYNGEAL PAIN
  2. REMICADE [Suspect]
     Indication: RHEUMATOID ARTHRITIS
     Dosage: PRN,  INTRAVENOUS DRIP
     Route: 041
     Dates: start: 20010214
  3. PREDNISONE [Concomitant]
  4. ARAVA [Concomitant]
  5. ENBREL [Concomitant]
  6. METHOTREXATE [Concomitant]
  7. LORATADINE [Concomitant]

REACTIONS (1)
  - DERMATITIS EXFOLIATIVE [None]
